FAERS Safety Report 26102344 (Version 1)
Quarter: 2025Q4

REPORT INFORMATION
  Report Type: Spontaneous
  Country: GB (occurrence: GB)
  Receive Date: 20251128
  Receipt Date: 20251128
  Transmission Date: 20260117
  Serious: Yes (Other)
  Sender: DR REDDYS
  Company Number: None

PATIENT
  Age: 20 Year

DRUGS (2)
  1. FONDAPARINUX [Suspect]
     Active Substance: FONDAPARINUX
     Indication: Product used for unknown indication
     Dosage: 5 MILLIGRAM
     Route: 058
  2. FONDAPARINUX [Suspect]
     Active Substance: FONDAPARINUX
     Dosage: 10 MILLIGRAM
     Route: 058

REACTIONS (6)
  - Quadriplegia [Unknown]
  - Hypoaesthesia [Unknown]
  - Swelling [Unknown]
  - Sensory loss [Unknown]
  - Facial paralysis [Unknown]
  - Dyspnoea [Unknown]

NARRATIVE: CASE EVENT DATE: 20251109
